FAERS Safety Report 6402078-2 (Version None)
Quarter: 2009Q4

REPORT INFORMATION
  Report Type: 
  Country: None (occurrence: None)
  Receive Date: 20091015
  Receipt Date: 20091006
  Transmission Date: 20100525
  Serious: Yes (Other)
  Sender: FDA-Public Use
  Company Number: JP-PFIZER INC-2009267308

PATIENT
  Age: 90 Year

DRUGS (5)
  1. VFEND [Suspect]
     Indication: SINUSITIS ASPERGILLUS
     Dosage: 600 MG, 1X/DAY
     Route: 048
     Dates: start: 20090716, end: 20090716
  2. VFEND [Suspect]
     Dosage: 400 MG, 1X/DAY
     Route: 048
     Dates: start: 20090717, end: 20090731
  3. VFEND [Suspect]
     Dosage: 100 MG, 1X/DAY
     Route: 048
  4. VFEND [Suspect]
     Dosage: 300 MG, 1X/DAY
     Route: 048
  5. BEZATOL - SLOW RELEASE [Suspect]
     Route: 048

REACTIONS (1)
  - RHABDOMYOLYSIS [None]
